FAERS Safety Report 7912754-8 (Version None)
Quarter: 2011Q4

REPORT INFORMATION
  Report Type: 
  Country: None (occurrence: None)
  Receive Date: 20111114
  Receipt Date: 20111110
  Transmission Date: 20120403
  Serious: Yes (Other)
  Sender: FDA-Public Use
  Company Number: US-VERTEX PHARMACEUTICALS INC.-AE-2011-003265

PATIENT
  Age: 73 Year
  Sex: Male
  Weight: 95.34 kg

DRUGS (3)
  1. RIBAVIRIN [Concomitant]
     Indication: HEPATITIS C
     Dates: start: 20111001
  2. PEGASYS [Concomitant]
     Indication: HEPATITIS C
     Dates: start: 20111001
  3. INCIVEK [Suspect]
     Indication: HEPATITIS C
     Route: 048
     Dates: start: 20111001

REACTIONS (5)
  - DYSPNOEA [None]
  - FATIGUE [None]
  - BLOOD GLUCOSE INCREASED [None]
  - INCREASED UPPER AIRWAY SECRETION [None]
  - HAEMOGLOBIN DECREASED [None]
